FAERS Safety Report 7928070-4 (Version None)
Quarter: 2011Q4

REPORT INFORMATION
  Report Type: 
  Country: None (occurrence: None)
  Receive Date: 20111118
  Receipt Date: 20111111
  Transmission Date: 20120403
  Serious: Yes (Other)
  Sender: FDA-Public Use
  Company Number: US-GLAXOSMITHKLINE-A0952804A

PATIENT
  Age: 52 Year
  Sex: Male

DRUGS (7)
  1. SYNTHROID [Concomitant]
  2. MICARDIS [Concomitant]
  3. KEPPRA [Concomitant]
  4. CYPROHEPTADINE HCL [Concomitant]
  5. VOTRIENT [Suspect]
     Indication: RENAL CELL CARCINOMA
     Dosage: 800MG PER DAY
     Route: 048
     Dates: start: 20110801
  6. REGLAN [Concomitant]
  7. AMBIEN [Concomitant]

REACTIONS (3)
  - NAUSEA [None]
  - VOMITING [None]
  - HYPOTHYROIDISM [None]
